FAERS Safety Report 4474209-5 (Version None)
Quarter: 2004Q4

REPORT INFORMATION
  Report Type: 
  Country: None (occurrence: None)
  Receive Date: 20041008
  Receipt Date: 20040928
  Transmission Date: 20050328
  Serious: Yes (Other)
  Sender: FDA-Public Use
  Company Number: HQWYE917307JUL04

PATIENT
  Age: 46 Year
  Sex: Female
  Weight: 92.16 kg

DRUGS (1)
  1. EFFEXOR XR [Suspect]
     Dosage: 150 MG 1X PER 1 DAY, ORAL
     Route: 048
     Dates: end: 20040710

REACTIONS (1)
  - PHAEOCHROMOCYTOMA [None]
